FAERS Safety Report 6415563-4 (Version None)
Quarter: 2009Q4

REPORT INFORMATION
  Report Type: 
  Country: None (occurrence: None)
  Receive Date: 20091027
  Receipt Date: 20091022
  Transmission Date: 20100525
  Serious: Yes (Other)
  Sender: FDA-Public Use
  Company Number: US-BRISTOL-MYERS SQUIBB COMPANY-14828297

PATIENT
  Age: 61 Year
  Sex: Female
  Weight: 63 kg

DRUGS (7)
  1. ORENCIA [Suspect]
     Indication: RHEUMATOID ARTHRITIS
     Dosage: PREVIOUSLY IN 2007 FOR 4-5 MONTHS;
     Dates: start: 20090701
  2. LEVOTHYROXINE SODIUM [Concomitant]
  3. ESTRADIOL [Concomitant]
  4. PRILOSEC [Concomitant]
  5. LORTAB [Concomitant]
  6. MEDROL [Concomitant]
  7. MULTI-VITAMIN [Concomitant]

REACTIONS (5)
  - DIZZINESS [None]
  - FATIGUE [None]
  - INTERVERTEBRAL DISC PROTRUSION [None]
  - NERVOUSNESS [None]
  - PALPITATIONS [None]
